FAERS Safety Report 12446688 (Version 2)
Quarter: 2018Q4

REPORT INFORMATION
  Report Type: Spontaneous
  Country: US (occurrence: US)
  Receive Date: 20160608
  Receipt Date: 20181018
  Transmission Date: 20190204
  Serious: No
  Sender: FDA-Public Use
  Company Number: US-PFIZER INC-2016150953

PATIENT
  Age: 49 Year
  Sex: Female
  Weight: 77 kg

DRUGS (4)
  1. NALTREXONE [Concomitant]
     Active Substance: NALTREXONE
     Indication: PAIN
     Dosage: 10 MG, 1X/DAY (AT NIGHT EVERYDAY) (LOW DOSE)
     Route: 048
     Dates: start: 20180501
  2. GENOTROPIN [Suspect]
     Active Substance: SOMATROPIN
     Indication: GROWTH HORMONE DEFICIENCY
     Dosage: 0.5 MG, DAILY
     Route: 058
  3. GENOTROPIN [Suspect]
     Active Substance: SOMATROPIN
     Dosage: 0.6 MG, DAILY (BEDTIME)
     Route: 058
     Dates: start: 20160515
  4. GENOTROPIN [Suspect]
     Active Substance: SOMATROPIN
     Dosage: 0.5 UNK, 1X/DAY
     Route: 058
     Dates: start: 2015

REACTIONS (4)
  - Fatigue [Recovering/Resolving]
  - Incorrect dose administered [Unknown]
  - Device issue [Unknown]
  - Ehlers-Danlos syndrome [Not Recovered/Not Resolved]

NARRATIVE: CASE EVENT DATE: 201802
